FAERS Safety Report 5443576-8 (Version None)
Quarter: 2007Q3

REPORT INFORMATION
  Report Type: 
  Country: None (occurrence: None)
  Receive Date: 20070905
  Receipt Date: 20070830
  Transmission Date: 20080115
  Serious: Yes (Hospitalization)
  Sender: FDA-Public Use
  Company Number: US-BRISTOL-MYERS SQUIBB COMPANY-13784541

PATIENT
  Age: 66 Year
  Sex: Female

DRUGS (6)
  1. BMS582664 [Suspect]
     Indication: COLORECTAL CANCER METASTATIC
     Route: 048
     Dates: start: 20070207, end: 20070503
  2. ERBITUX [Suspect]
     Indication: COLORECTAL CANCER METASTATIC
     Route: 042
     Dates: start: 20070502, end: 20070502
  3. IMODIUM [Concomitant]
     Dates: start: 20060405
  4. KYTRIL [Concomitant]
     Dates: start: 20060405
  5. TYLENOL (CAPLET) [Concomitant]
     Dates: start: 20060405
  6. LOMOTIL [Concomitant]
     Dates: start: 20070404

REACTIONS (2)
  - DIARRHOEA [None]
  - RENAL FAILURE [None]
